FAERS Safety Report 21970251 (Version 2)
Quarter: 2023Q1

REPORT INFORMATION
  Report Type: Spontaneous
  Country: US (occurrence: US)
  Receive Date: 20230209
  Receipt Date: 20230228
  Transmission Date: 20230417
  Serious: Yes (Death)
  Sender: FDA-Public Use
  Company Number: US-GLAND PHARMA LIMITED-2023US000350

PATIENT

DRUGS (1)
  1. MILRINONE LACTATE [Suspect]
     Active Substance: MILRINONE LACTATE
     Indication: Cardiac failure
     Dosage: UNK, UNKNOWN DOSE BUT ROUTE IS THROUGH A CENTRAL LINE AND PICC
     Route: 042

REACTIONS (1)
  - Hepatic failure [Fatal]
